FAERS Safety Report 6644405-7 (Version None)
Quarter: 2010Q1

REPORT INFORMATION
  Report Type: 
  Country: None (occurrence: None)
  Receive Date: 20100304
  Receipt Date: 20090326
  Transmission Date: 20100710
  Serious: Yes (Hospitalization)
  Sender: FDA-Public Use
  Company Number: US-002685

PATIENT
  Age: 28 Year
  Sex: Female

DRUGS (1)
  1. ISOVUE-300 [Suspect]
     Dosage: 100MG QD INTRAVENOUS (NOT OTHERWISE SPECIFIED)
     Route: 042
     Dates: start: 20090326, end: 20090326

REACTIONS (4)
  - HYPERHIDROSIS [None]
  - SNEEZING [None]
  - THROAT TIGHTNESS [None]
  - UNRESPONSIVE TO STIMULI [None]
